FAERS Safety Report 8506739-0 (Version None)
Quarter: 2012Q3

REPORT INFORMATION
  Report Type: 
  Country: None (occurrence: None)
  Receive Date: 20120712
  Receipt Date: 20090706
  Transmission Date: 20120928
  Serious: Yes (Other)
  Sender: FDA-Public Use
  Company Number: CO-PFIZER INC-2012165275

PATIENT
  Age: 59 Year
  Sex: Female

DRUGS (8)
  1. METFORMIN [Concomitant]
     Dosage: 850 MG, 2X/DAY
     Route: 048
  2. GLIBENCLAMIDE [Concomitant]
     Dosage: 5 MG, EACH 8 HOURS
     Route: 048
  3. LOSARTAN [Concomitant]
     Dosage: 50 MG, 2X/DAY
     Route: 048
  4. GLIBENCLAMIDE [Concomitant]
     Dosage: 5 MG, 2X/DAY
     Route: 048
  5. LIPITOR [Suspect]
     Dosage: 10 MG, 1X/DAY
     Route: 048
  6. LOSARTAN [Concomitant]
     Dosage: 50 MG, 1X/DAY
     Route: 048
  7. OLMESARTAN MEDOXOMIL AND HYDROCHLOROTHIZIDE [Suspect]
     Dosage: 12.5 MG, 1X/DAY
     Route: 048
  8. ACETYLSALICYLIC ACID [Concomitant]
     Dosage: 100 MG, 1X/DAY
     Route: 048

REACTIONS (4)
  - PALPITATIONS [None]
  - RENAL FAILURE CHRONIC [None]
  - CHEST PAIN [None]
  - DYSPNOEA [None]
